FAERS Safety Report 16735738 (Version 12)
Quarter: 2022Q4

REPORT INFORMATION
  Report Type: Spontaneous
  Country: US (occurrence: US)
  Receive Date: 20190823
  Receipt Date: 20221028
  Transmission Date: 20230112
  Serious: No
  Sender: FDA-Public Use
  Company Number: US-PFIZER INC-2019361936

PATIENT
  Age: 65 Year
  Sex: Female

DRUGS (1)
  1. XELJANZ XR [Suspect]
     Active Substance: TOFACITINIB CITRATE
     Dosage: 11 MG, DAILY
     Route: 048

REACTIONS (7)
  - Product prescribing error [Unknown]
  - Pain [Unknown]
  - Malaise [Unknown]
  - Condition aggravated [Unknown]
  - Arthralgia [Unknown]
  - Joint stiffness [Unknown]
  - Osteoarthritis [Unknown]
